FAERS Safety Report 5756255-4 (Version None)
Quarter: 2008Q2

REPORT INFORMATION
  Report Type: 
  Country: None (occurrence: None)
  Receive Date: 20080602
  Receipt Date: 20080521
  Transmission Date: 20081010
  Serious: Yes (Other)
  Sender: FDA-Public Use
  Company Number: US-PFIZER INC-2008044163

PATIENT

DRUGS (2)
  1. CHANTIX [Suspect]
  2. WELLBUTRIN [Concomitant]
     Indication: DEPRESSION

REACTIONS (4)
  - AGITATION [None]
  - INSOMNIA [None]
  - MANIA [None]
  - SMOKER [None]
